FAERS Safety Report 9888078 (Version 1)
Quarter: 2014Q1

REPORT INFORMATION
  Report Type: Spontaneous
  Country: US (occurrence: None)
  Receive Date: 20140207
  Receipt Date: 20140207
  Transmission Date: 20141002
  Serious: Yes (Death)
  Sender: FDA-Public Use
  Company Number: SYM-2014-15707

PATIENT
  Age: 44 Year
  Sex: Male

DRUGS (6)
  1. DILTIAZEM (DILTIAZEM) (DILTIAZEM) [Suspect]
     Indication: PRODUCT USED FOR UNKNOWN INDICATION
  2. HEROIN (DIAMORPHINE) (DIAMORPHINE) [Suspect]
     Indication: PRODUCT USED FOR UNKNOWN INDICATION
  3. ALPRAZOLAM (ALPRAZOLAM) (ALPRAZOLAM) [Suspect]
     Indication: PRODUCT USED FOR UNKNOWN INDICATION
  4. DIPHENHYDRAMINE [Suspect]
     Indication: PRODUCT USED FOR UNKNOWN INDICATION
  5. DEXTROMETHORPHAN [Suspect]
     Indication: PRODUCT USED FOR UNKNOWN INDICATION
  6. QUININE [Suspect]
     Indication: PRODUCT USED FOR UNKNOWN INDICATION

REACTIONS (1)
  - Drug abuse [None]
